FAERS Safety Report 18324744 (Version 4)
Quarter: 2021Q2

REPORT INFORMATION
  Report Type: Spontaneous
  Country: JP (occurrence: JP)
  Receive Date: 20200929
  Receipt Date: 20210420
  Transmission Date: 20210717
  Serious: Yes (Hospitalization)
  Sender: FDA-Public Use
  Company Number: JP-BAYER-2020-200725

PATIENT
  Age: 67 Year
  Sex: Male

DRUGS (10)
  1. LENDORMIN [Concomitant]
     Active Substance: BROTIZOLAM
  2. MIYA?BM [Concomitant]
     Active Substance: CLOSTRIDIUM BUTYRICUM SPORES STRAIN M-55
  3. PLAVIX [Concomitant]
     Active Substance: CLOPIDOGREL BISULFATE
  4. FEBURIC [Concomitant]
     Active Substance: FEBUXOSTAT
  5. STIVARGA [Suspect]
     Active Substance: REGORAFENIB
     Indication: HEPATOCELLULAR CARCINOMA
     Dosage: DAILY DOSE 160 MG
     Dates: start: 20200410, end: 20200727
  6. PARIET [Concomitant]
     Active Substance: RABEPRAZOLE SODIUM
  7. THYRADIN [Concomitant]
     Active Substance: LEVOTHYROXINE
  8. SAMSCA [Concomitant]
     Active Substance: TOLVAPTAN
  9. LIVACT [AMINO ACIDS NOS] [Concomitant]
  10. ALDACTONE A [Concomitant]
     Active Substance: SPIRONOLACTONE

REACTIONS (10)
  - Bone marrow failure [None]
  - Renal impairment [Recovering/Resolving]
  - Haemoglobin decreased [None]
  - Anaemia [None]
  - Platelet count decreased [None]
  - Gingival bleeding [None]
  - Faeces discoloured [None]
  - Immune thrombocytopenia [None]
  - Petechiae [None]
  - Pancytopenia [None]

NARRATIVE: CASE EVENT DATE: 20200727
